FAERS Safety Report 6476839-8 (Version None)
Quarter: 2009Q4

REPORT INFORMATION
  Report Type: 
  Country: None (occurrence: None)
  Receive Date: 20091207
  Receipt Date: 20091127
  Transmission Date: 20100525
  Serious: Yes (Hospitalization)
  Sender: FDA-Public Use
  Company Number: JP-ABBOTT-09P-087-0605985-00

PATIENT
  Sex: Male
  Weight: 52.9 kg

DRUGS (4)
  1. CLARITHROMYCIN [Suspect]
     Indication: ENTERITIS INFECTIOUS
     Route: 048
     Dates: start: 20051008, end: 20091017
  2. BIOFERMIN R [Concomitant]
     Indication: ENTERITIS INFECTIOUS
     Route: 048
     Dates: start: 20091008, end: 20091017
  3. BLOPRESS [Concomitant]
     Indication: HYPERTENSION
     Route: 048
     Dates: start: 20091027
  4. PAXIL [Concomitant]
     Indication: DEPRESSION
     Route: 048
     Dates: start: 20090407

REACTIONS (1)
  - LIVER DISORDER [None]
